FAERS Safety Report 14935090 (Version 2)
Quarter: 2018Q2

REPORT INFORMATION
  Report Type: Report from Study
  Country: JP (occurrence: JP)
  Receive Date: 20180524
  Receipt Date: 20180531
  Transmission Date: 20180711
  Serious: Yes (Hospitalization)
  Sender: FDA-Public Use
  Company Number: JP-ROCHE-2122020

PATIENT
  Age: 35 Year
  Sex: Female
  Weight: 62.5 kg

DRUGS (8)
  1. GLAKAY [Concomitant]
     Active Substance: MENATETRENONE
     Indication: HEPATIC CIRRHOSIS
     Route: 048
     Dates: start: 20180312
  2. FILGRASTIM [Concomitant]
     Active Substance: FILGRASTIM
     Indication: FEBRILE NEUTROPENIA
     Route: 058
     Dates: start: 20180508, end: 20180509
  3. ATEZOLIZUMAB. [Suspect]
     Active Substance: ATEZOLIZUMAB
     Indication: HEPATIC CANCER
     Dosage: MOST RECENT DOSE
     Route: 042
     Dates: start: 20180424
  4. LIVACT [Concomitant]
     Active Substance: AMINO ACIDS
     Indication: HEPATIC CIRRHOSIS
     Route: 048
     Dates: start: 20140413
  5. KERATINAMIN [Concomitant]
     Active Substance: UREA
     Indication: HYPERKERATOSIS
     Route: 061
     Dates: start: 20180513
  6. BEVACIZUMAB. [Suspect]
     Active Substance: BEVACIZUMAB
     Indication: HEPATIC CANCER
     Dosage: MOST RECENT DOSE
     Route: 042
     Dates: start: 20180424
  7. PICOSULFATE DE SODIUM [Concomitant]
     Indication: CONSTIPATION
     Route: 048
     Dates: start: 20160713
  8. LANSOPRAZOLE SODIUM [Concomitant]
     Indication: GASTRITIS PROPHYLAXIS
     Route: 048
     Dates: start: 20140413

REACTIONS (1)
  - Pyrexia [Not Recovered/Not Resolved]

NARRATIVE: CASE EVENT DATE: 20180503
